FAERS Safety Report 5130911-3 (Version None)
Quarter: 2006Q3

REPORT INFORMATION
  Report Type: 
  Country: None (occurrence: None)
  Receive Date: 20060829
  Receipt Date: 20060707
  Transmission Date: 20061208
  Serious: No
  Sender: FDA-Public Use
  Company Number: PHEH2006US05283

PATIENT
  Age: 58 Year
  Sex: Female
  Weight: 48 kg

DRUGS (3)
  1. EXJADE [Suspect]
     Indication: HAEMOCHROMATOSIS
     Dosage: SEE IMAGE
     Route: 048
     Dates: start: 20060131, end: 20060421
  2. EXJADE [Suspect]
     Indication: HAEMOCHROMATOSIS
     Dosage: SEE IMAGE
     Route: 048
     Dates: start: 20060510, end: 20060622
  3. EXJADE [Suspect]
     Indication: HAEMOCHROMATOSIS
     Dosage: SEE IMAGE
     Route: 048
     Dates: start: 20060623

REACTIONS (3)
  - ASPARTATE AMINOTRANSFERASE INCREASED [None]
  - BLOOD BILIRUBIN INCREASED [None]
  - BLOOD LACTATE DEHYDROGENASE INCREASED [None]
